FAERS Safety Report 20962348 (Version 2)
Quarter: 2022Q3

REPORT INFORMATION
  Report Type: Spontaneous
  Country: US (occurrence: US)
  Receive Date: 20220615
  Receipt Date: 20220714
  Transmission Date: 20221026
  Serious: No
  Sender: FDA-Public Use
  Company Number: US-BIOGEN-2022BI01098125

PATIENT
  Sex: Female

DRUGS (6)
  1. TYSABRI [Suspect]
     Active Substance: NATALIZUMAB
     Indication: Multiple sclerosis
     Route: 050
     Dates: start: 20080519, end: 20211012
  2. TYSABRI [Suspect]
     Active Substance: NATALIZUMAB
     Route: 050
  3. TYSABRI [Suspect]
     Active Substance: NATALIZUMAB
     Route: 050
     Dates: start: 20220419
  4. TYSABRI [Suspect]
     Active Substance: NATALIZUMAB
     Route: 050
     Dates: start: 202204
  5. TYSABRI [Suspect]
     Active Substance: NATALIZUMAB
     Route: 050
     Dates: start: 202205
  6. TYSABRI [Suspect]
     Active Substance: NATALIZUMAB
     Route: 050
     Dates: start: 20220614

REACTIONS (5)
  - Multiple sclerosis [Not Recovered/Not Resolved]
  - Phlebosclerosis [Not Recovered/Not Resolved]
  - Poor venous access [Not Recovered/Not Resolved]
  - COVID-19 [Unknown]
  - Vein disorder [Unknown]
